FAERS Safety Report 7718470-X (Version None)
Quarter: 2011Q3

REPORT INFORMATION
  Report Type: 
  Country: None (occurrence: None)
  Receive Date: 20110830
  Receipt Date: 20110819
  Transmission Date: 20111222
  Serious: Yes (Hospitalization)
  Sender: FDA-Public Use
  Company Number: US-JNJFOC-20110809490

PATIENT
  Sex: Male
  Weight: 83.92 kg

DRUGS (4)
  1. PREDNISONE [Suspect]
     Indication: PROSTATE CANCER
     Route: 048
     Dates: start: 20110601
  2. ZYTIGA [Suspect]
     Indication: PROSTATE CANCER
     Dosage: STRENGTH: 250 MG
     Route: 048
     Dates: start: 20110601, end: 20110101
  3. ZYTIGA [Suspect]
     Dosage: STRENGTH: 250 MG
     Route: 048
     Dates: start: 20110101
  4. COREG [Concomitant]
     Indication: BLOOD PRESSURE
     Route: 048
     Dates: start: 20100101

REACTIONS (8)
  - BLOOD ALBUMIN DECREASED [None]
  - PAIN [None]
  - BLOOD GLUCOSE FLUCTUATION [None]
  - RENAL FAILURE [None]
  - SWELLING [None]
  - DIARRHOEA [None]
  - BLOOD CREATININE INCREASED [None]
  - CATHETER SITE HAEMORRHAGE [None]
